FAERS Safety Report 8827894 (Version 2)
Quarter: 2012Q4

REPORT INFORMATION
  Report Type: 
  Country: IT (occurrence: IT)
  Receive Date: 20121005
  Receipt Date: 20121019
  Transmission Date: 20130627
  Serious: Yes (Hospitalization)
  Sender: FDA-Public Use
  Company Number: IT-MPIJNJ-2012-06701

PATIENT

DRUGS (6)
  1. VELCADE [Suspect]
     Indication: MULTIPLE MYELOMA
     Dosage: 1.3 mg, Cyclic
     Route: 042
     Dates: start: 20120326, end: 20120720
  2. ALLOPURINOL [Concomitant]
     Dosage: 300 mg, UNK
     Route: 048
     Dates: start: 20120326
  3. ISOPTIN                            /00014301/ [Concomitant]
     Dosage: 240 mg, UNK
     Route: 048
     Dates: start: 20120326
  4. LASIX                              /00032601/ [Concomitant]
     Dosage: 25 mg, UNK
     Route: 048
     Dates: start: 20120326
  5. KANRENOL [Concomitant]
     Dosage: UNK
     Route: 048
     Dates: start: 20120326
  6. LANSOPRAZOLE [Concomitant]
     Dosage: 30 mg, UNK
     Route: 048
     Dates: start: 20120326

REACTIONS (5)
  - Autonomic nervous system imbalance [Unknown]
  - Dizziness [Not Recovered/Not Resolved]
  - Constipation [Not Recovered/Not Resolved]
  - Syncope [Not Recovered/Not Resolved]
  - Orthostatic hypotension [Unknown]
